FAERS Safety Report 8575235-7 (Version None)
Quarter: 2012Q3

REPORT INFORMATION
  Report Type: 
  Country: None (occurrence: None)
  Receive Date: 20120807
  Receipt Date: 20120730
  Transmission Date: 20120928
  Serious: Yes (Other)
  Sender: FDA-Public Use
  Company Number: US-JNJFOC-20120609846

PATIENT
  Sex: Female
  Weight: 56.7 kg

DRUGS (3)
  1. VITAMIN B-12 [Concomitant]
     Dates: start: 20090101
  2. REMICADE [Suspect]
     Indication: CROHN'S DISEASE
     Dosage: DOSE/STRENGTH:    NUMBER 30/SOLUTION/ 10MG/ 8 WEEKS/ INTRAVENOUS
     Route: 042
     Dates: start: 20111201, end: 20120101
  3. PREDNISONE [Concomitant]
     Indication: CROHN'S DISEASE
     Route: 048
     Dates: start: 20110401, end: 20111201

REACTIONS (6)
  - ARTHRALGIA [None]
  - BREAST FEEDING [None]
  - MIGRAINE [None]
  - CARPAL TUNNEL SYNDROME [None]
  - BACK PAIN [None]
  - HYPOAESTHESIA [None]
